FAERS Safety Report 6940797-X (Version None)
Quarter: 2010Q3

REPORT INFORMATION
  Report Type: 
  Country: None (occurrence: None)
  Receive Date: 20100825
  Receipt Date: 20100818
  Transmission Date: 20110219
  Serious: Yes (Other)
  Sender: FDA-Public Use
  Company Number: BR-GILEAD-2010-0030926

PATIENT
  Sex: Male
  Weight: 53 kg

DRUGS (7)
  1. VIREAD [Suspect]
     Indication: HIV INFECTION
     Route: 048
     Dates: start: 20100630
  2. ISENTRESS [Suspect]
     Indication: HIV INFECTION
     Route: 048
     Dates: start: 20100630
  3. EPIVIR [Suspect]
     Indication: HIV INFECTION
     Route: 048
     Dates: start: 20100630
  4. ISONIAZID [Concomitant]
     Indication: TUBERCULOSIS
     Dates: start: 20100522
  5. RIFAMPIN [Concomitant]
     Indication: TUBERCULOSIS
     Dates: start: 20100522
  6. PYRAZINAMIDE [Concomitant]
     Indication: TUBERCULOSIS
     Dates: start: 20100522, end: 20100726
  7. TRIMETHOPRIM + SULFAMETHOXAZOLE [Concomitant]
     Indication: PROPHYLAXIS

REACTIONS (1)
  - LEUKOPENIA [None]
